FAERS Safety Report 4501148-3 (Version None)
Quarter: 2004Q4

REPORT INFORMATION
  Report Type: 
  Country: None (occurrence: None)
  Receive Date: 20041110
  Receipt Date: 20041102
  Transmission Date: 20050328
  Serious: Yes (Hospitalization)
  Sender: FDA-Public Use
  Company Number: MK200411-0020-1

PATIENT
  Age: 34 Year
  Sex: Female

DRUGS (1)
  1. MEPERIDINE HCL [Suspect]
     Indication: ANALGESIC EFFECT
     Dosage: 15 MG EVERY 6 MINUTES

REACTIONS (3)
  - ACETABULUM FRACTURE [None]
  - DISLOCATION OF JOINT PROSTHESIS [None]
  - GRAND MAL CONVULSION [None]
